FAERS Safety Report 10654437 (Version 1)
Quarter: 2014Q4

REPORT INFORMATION
  Report Type: Spontaneous
  Country: US (occurrence: None)
  Receive Date: 20141205
  Receipt Date: 20141205
  Transmission Date: 20150529
  Serious: Yes (Other)
  Sender: FDA-Public Use
  Company Number: 163-POMAL-14093343

PATIENT
  Age: 57 Year
  Sex: Male
  Weight: 87.54 kg

DRUGS (9)
  1. MORPHINE SULFATE. [Concomitant]
     Active Substance: MORPHINE SULFATE
  2. VALACYCLOVIR (VALACICLOVIR HYDROCHLORIDE) [Concomitant]
  3. POMALYST [Suspect]
     Active Substance: POMALIDOMIDE
     Indication: PLASMA CELL MYELOMA
     Dosage: 4 MG, 21 IN 28 D, PO
     Route: 048
     Dates: start: 201311
  4. SENEKOT S (COLOXYL WITH SENNA) [Concomitant]
  5. DEXAMETHASONE. [Concomitant]
     Active Substance: DEXAMETHASONE
     Route: 048
     Dates: start: 201311
  6. BORTEZOMIB [Concomitant]
     Active Substance: BORTEZOMIB
  7. OXYCODONE [Concomitant]
     Active Substance: OXYCODONE
  8. PROCHLORPERAZINE. [Concomitant]
     Active Substance: PROCHLORPERAZINE
  9. ONDANSETRON [Concomitant]
     Active Substance: ONDANSETRON

REACTIONS (3)
  - Haemoglobin decreased [None]
  - Platelet count decreased [None]
  - Neutrophil count decreased [None]

NARRATIVE: CASE EVENT DATE: 201409
